FAERS Safety Report 6569711-6 (Version None)
Quarter: 2010Q1

REPORT INFORMATION
  Report Type: 
  Country: None (occurrence: None)
  Receive Date: 20100204
  Receipt Date: 20100127
  Transmission Date: 20100710
  Serious: Yes (Other)
  Sender: FDA-Public Use
  Company Number: PHHY2009BR47279

PATIENT
  Sex: Male
  Weight: 79 kg

DRUGS (2)
  1. DIOVAN HCT [Suspect]
     Indication: HYPERTENSION
     Dosage: 1 TABLET DAILY
     Route: 048
  2. DIOVAN HCT [Suspect]
     Dosage: 2 TABLETS DAILY

REACTIONS (10)
  - ABDOMINAL PAIN [None]
  - BLOOD PRESSURE INCREASED [None]
  - CHEST PAIN [None]
  - DYSPNOEA [None]
  - FALL [None]
  - GALLBLADDER OPERATION [None]
  - HEADACHE [None]
  - LABYRINTHITIS [None]
  - NODULE [None]
  - SURGERY [None]
